FAERS Safety Report 5679342-8 (Version None)
Quarter: 2008Q1

REPORT INFORMATION
  Report Type: 
  Country: None (occurrence: None)
  Receive Date: 20080325
  Receipt Date: 20080315
  Transmission Date: 20080703
  Serious: Yes (Hospitalization)
  Sender: FDA-Public Use
  Company Number: GB-ROCHE-554217

PATIENT
  Age: 21 Year
  Sex: Female
  Weight: 123.8 kg

DRUGS (1)
  1. ORLISTAT [Suspect]
     Indication: OBESITY
     Route: 048
     Dates: start: 20071215, end: 20080115

REACTIONS (4)
  - FALL [None]
  - JOINT DISLOCATION [None]
  - LIGAMENT RUPTURE [None]
  - NERVE INJURY [None]
